FAERS Safety Report 11832682 (Version 2)
Quarter: 2015Q4

REPORT INFORMATION
  Report Type: Spontaneous
  Country: FR (occurrence: FR)
  Receive Date: 20151214
  Receipt Date: 20151215
  Transmission Date: 20160305
  Serious: Yes (Hospitalization)
  Sender: FDA-Public Use
  Company Number: FR-FRESENIUS KABI-FK201506525

PATIENT
  Age: 79 Year
  Sex: Female

DRUGS (2)
  1. CARBOPLATIN INJECTION 10MG/ML [Suspect]
     Active Substance: CARBOPLATIN
     Indication: OVARIAN CANCER METASTATIC
     Route: 042
     Dates: start: 20151120, end: 20151120
  2. PACLITAXEL KABI [Concomitant]
     Active Substance: PACLITAXEL
     Indication: OVARIAN CANCER METASTATIC
     Route: 042

REACTIONS (3)
  - Dyspnoea [Recovered/Resolved]
  - Tachypnoea [Recovered/Resolved]
  - Chest pain [Recovered/Resolved]

NARRATIVE: CASE EVENT DATE: 20151120
